FAERS Safety Report 19071760 (Version 4)
Quarter: 2021Q4

REPORT INFORMATION
  Report Type: Spontaneous
  Country: US (occurrence: US)
  Receive Date: 20210330
  Receipt Date: 20211005
  Transmission Date: 20220303
  Serious: No
  Sender: FDA-Public Use
  Company Number: US-SA-SAC20210329000477

PATIENT
  Age: 59 Year
  Sex: Female

DRUGS (2)
  1. DUPIXENT [Suspect]
     Active Substance: DUPILUMAB
     Indication: Dermatitis atopic
     Dosage: 300 MG, QOW
     Route: 058
     Dates: start: 20210303, end: 2021
  2. ALCOHOL [Interacting]
     Active Substance: ALCOHOL

REACTIONS (7)
  - Eye infection [Unknown]
  - Erythema [Unknown]
  - Alcohol interaction [Unknown]
  - Burning sensation [Unknown]
  - Feeling hot [Unknown]
  - Back pain [Unknown]
  - Arthralgia [Unknown]

NARRATIVE: CASE EVENT DATE: 20210101
